FAERS Safety Report 5662395-0 (Version None)
Quarter: 2008Q1

REPORT INFORMATION
  Report Type: 
  Country: None (occurrence: None)
  Receive Date: 20080313
  Receipt Date: 20080229
  Transmission Date: 20080703
  Serious: Yes (Death, Other)
  Sender: FDA-Public Use
  Company Number: PE-BAYER-200814594GPV

PATIENT

DRUGS (6)
  1. CAMPATH [Suspect]
     Indication: MYCOSIS FUNGOIDES RECURRENT
     Dosage: TOTAL DAILY DOSE: 3 MG
     Route: 042
  2. CAMPATH [Suspect]
     Route: 042
  3. CAMPATH [Suspect]
     Route: 042
  4. CAMPATH [Suspect]
     Route: 042
  5. TRIMETHOPRIM / SULPHAMETHOXAZOLE [Concomitant]
     Indication: ANTIBIOTIC PROPHYLAXIS
     Route: 065
  6. ACYCLOVIR [Concomitant]
     Indication: ANTIVIRAL PROPHYLAXIS
     Route: 065

REACTIONS (9)
  - CYTOMEGALOVIRUS INFECTION [None]
  - ESCHERICHIA SEPSIS [None]
  - GENITAL HERPES [None]
  - NERVOUS SYSTEM DISORDER [None]
  - NEUTROPENIA [None]
  - PNEUMONIA CYTOMEGALOVIRAL [None]
  - PYREXIA [None]
  - THROMBOCYTOPENIA [None]
  - UROSEPSIS [None]
